FAERS Safety Report 4288984-6 (Version None)
Quarter: 2004Q1

REPORT INFORMATION
  Report Type: 
  Country: None (occurrence: None)
  Receive Date: 20040206
  Receipt Date: 20031103
  Transmission Date: 20041129
  Serious: Yes (Hospitalization)
  Sender: FDA-Public Use
  Company Number: MEDI-0001103

PATIENT
  Age: 56 Year
  Sex: Male
  Weight: 94.3482 kg

DRUGS (4)
  1. ETHYOL [Suspect]
     Indication: RADIOTHERAPY
     Dosage: QD, INTRAVENOUS
     Route: 042
     Dates: start: 20030925, end: 20031031
  2. CELEBREX [Concomitant]
  3. NEXIUM [Concomitant]
  4. CIDOMYCIN (GENTAMICIN SULFATE) [Concomitant]

REACTIONS (8)
  - CONJUNCTIVAL HYPERAEMIA [None]
  - DERMATITIS BULLOUS [None]
  - DYSPHAGIA [None]
  - RASH [None]
  - RASH GENERALISED [None]
  - RASH VESICULAR [None]
  - SKIN DESQUAMATION [None]
  - TOXIC EPIDERMAL NECROLYSIS [None]
